FAERS Safety Report 6237850-5 (Version None)
Quarter: 2009Q2

REPORT INFORMATION
  Report Type: 
  Country: None (occurrence: None)
  Receive Date: 20090617
  Receipt Date: 20090609
  Transmission Date: 20091009
  Serious: Yes (Hospitalization)
  Sender: FDA-Public Use
  Company Number: SPV1-2009-01057

PATIENT
  Age: 58 Year
  Sex: Male

DRUGS (15)
  1. FOSRENOL [Suspect]
     Indication: HYPERPHOSPHATAEMIA
     Dosage: 750 MG, ORAL
     Route: 048
     Dates: start: 20090418, end: 20090520
  2. PANALDINE (TICLOPIDINE HYDROCHLORIDE) [Concomitant]
  3. BUFFERIN [Concomitant]
  4. DIOVAN [Concomitant]
  5. ZANTAC 150 [Concomitant]
  6. MUCOSTA (REBAMIPIDE) [Concomitant]
  7. CALTAN (CALCIUM CARBONATE) [Concomitant]
  8. BASEN (VOGLIBOSE) [Concomitant]
  9. SIGMART (NICORANDIL) [Concomitant]
  10. METHYCOBAL (CYANOCOBALAMIN) [Concomitant]
  11. PROCYCLIN (BERAPROST SODIUM) [Concomitant]
  12. FERRUM (FERROUS GLUCONATE) [Concomitant]
  13. ALLOPURINOL [Concomitant]
  14. NORVASC [Concomitant]
  15. CARVEDILOL [Concomitant]

REACTIONS (3)
  - ANAEMIA [None]
  - DISEASE PROGRESSION [None]
  - PANCYTOPENIA [None]
